FAERS Safety Report 4860855-3 (Version None)
Quarter: 2005Q4

REPORT INFORMATION
  Report Type: 
  Country: None (occurrence: None)
  Receive Date: 20051220
  Receipt Date: 20051209
  Transmission Date: 20060501
  Serious: Yes (Other)
  Sender: FDA-Public Use
  Company Number: CA-BRISTOL-MYERS SQUIBB COMPANY-13217559

PATIENT
  Age: 78 Year
  Sex: Female

DRUGS (11)
  1. TEQUIN [Suspect]
     Route: 048
  2. ACTOS [Concomitant]
  3. ACULAR [Concomitant]
     Route: 047
  4. CALCIUM GLUCONATE [Concomitant]
  5. FLOVENT [Concomitant]
  6. GLYBURIDE [Concomitant]
  7. HYDROCHLOROTHIAZIDE [Concomitant]
  8. LIPITOR [Concomitant]
     Route: 048
  9. METFORMIN HCL [Concomitant]
  10. PRED FORTE [Concomitant]
     Route: 047
  11. COZAAR [Concomitant]

REACTIONS (1)
  - HYPOGLYCAEMIA [None]
